FAERS Safety Report 12767583 (Version 1)
Quarter: 2016Q3

REPORT INFORMATION
  Report Type: Spontaneous
  Country: US (occurrence: US)
  Receive Date: 20160921
  Receipt Date: 20160921
  Transmission Date: 20161109
  Serious: No
  Sender: FDA-Public Use
  Company Number: None

PATIENT
  Age: 73 Year
  Sex: Male
  Weight: 66.15 kg

DRUGS (16)
  1. ALENDRONATE [Concomitant]
     Active Substance: ALENDRONATE SODIUM
  2. KRILL OIL [Concomitant]
     Active Substance: DIETARY SUPPLEMENT
  3. KETOROLAC [Suspect]
     Active Substance: KETOROLAC\KETOROLAC TROMETHAMINE
     Indication: PROCEDURAL PAIN
     Route: 048
  4. WELCHOL [Concomitant]
     Active Substance: COLESEVELAM HYDROCHLORIDE
  5. PANTOPRAZOLE [Concomitant]
     Active Substance: PANTOPRAZOLE SODIUM
  6. PROPRANOLOL [Concomitant]
     Active Substance: PROPRANOLOL\PROPRANOLOL HYDROCHLORIDE
  7. PREDNISONE. [Concomitant]
     Active Substance: PREDNISONE
  8. METFORMIN [Concomitant]
     Active Substance: METFORMIN HYDROCHLORIDE
  9. ASPIRIN. [Concomitant]
     Active Substance: ASPIRIN
  10. NIASPAN [Concomitant]
     Active Substance: NIACIN
  11. PLAVIX [Concomitant]
     Active Substance: CLOPIDOGREL BISULFATE
  12. VIT B-12 [Concomitant]
  13. HYDROXYCHLOROQUINE [Concomitant]
     Active Substance: HYDROXYCHLOROQUINE
  14. LISINOPRIL. [Concomitant]
     Active Substance: LISINOPRIL
  15. XANAX [Concomitant]
     Active Substance: ALPRAZOLAM
  16. VITAMIN D3 [Concomitant]
     Active Substance: CHOLECALCIFEROL

REACTIONS (2)
  - Burning sensation [None]
  - Pruritus [None]

NARRATIVE: CASE EVENT DATE: 20160921
